FAERS Safety Report 8954347 (Version 1)
Quarter: 2012Q4

REPORT INFORMATION
  Report Type: 
  Country: US (occurrence: US)
  Receive Date: 20121207
  Receipt Date: 20121207
  Transmission Date: 20130627
  Serious: Yes (Hospitalization, Other)
  Sender: FDA-Public Use
  Company Number: US-ASTELLAS-2012US012031

PATIENT
  Age: 63 Year
  Sex: Female
  Weight: 61 kg

DRUGS (3)
  1. TARCEVA [Suspect]
     Indication: LUNG NEOPLASM MALIGNANT
     Dosage: 150 mg, UID/QD
     Route: 048
     Dates: start: 20120823, end: 20120917
  2. XANAX [Concomitant]
     Indication: ANXIETY
     Dosage: UNK
     Route: 048
  3. FERROUS SULFATE [Concomitant]
     Indication: ANAEMIA
     Dosage: 975 mg, UID/QD
     Route: 048
     Dates: start: 20120830

REACTIONS (5)
  - Incoherent [Recovered/Resolved]
  - Oedema peripheral [Recovered/Resolved]
  - Dyspnoea [Recovered/Resolved]
  - Malignant neoplasm progression [Unknown]
  - Adverse drug reaction [Unknown]
